FAERS Safety Report 15837885 (Version 1)
Quarter: 2019Q1

REPORT INFORMATION
  Report Type: Spontaneous
  Country: GB (occurrence: GB)
  Receive Date: 20190117
  Receipt Date: 20190117
  Transmission Date: 20190417
  Serious: Yes (Hospitalization)
  Sender: FDA-Public Use
  Company Number: GB-ASTRAZENECA-2019SE04035

PATIENT
  Age: 73 Year
  Sex: Male

DRUGS (6)
  1. PRAVASTATIN. [Concomitant]
     Active Substance: PRAVASTATIN
  2. IBUPROFEN. [Concomitant]
     Active Substance: IBUPROFEN
  3. DAPAGLIFLOZIN. [Suspect]
     Active Substance: DAPAGLIFLOZIN
     Indication: TYPE 2 DIABETES MELLITUS
     Route: 048
     Dates: end: 20181212
  4. METFORMIN [Concomitant]
     Active Substance: METFORMIN HYDROCHLORIDE
  5. GLIPIZIDE. [Concomitant]
     Active Substance: GLIPIZIDE
  6. PARACETAMOL [Concomitant]
     Active Substance: ACETAMINOPHEN

REACTIONS (1)
  - Diabetic ketoacidosis [Recovering/Resolving]

NARRATIVE: CASE EVENT DATE: 20181211
